FAERS Safety Report 5696521-4 (Version None)
Quarter: 2008Q2

REPORT INFORMATION
  Report Type: 
  Country: None (occurrence: None)
  Receive Date: 20080408
  Receipt Date: 20080403
  Transmission Date: 20081010
  Serious: Yes (Death)
  Sender: FDA-Public Use
  Company Number: ES-JNJFOC-20080400738

PATIENT
  Age: 96 Year
  Sex: Male

DRUGS (5)
  1. TAVANIC [Suspect]
     Indication: BRONCHITIS
     Route: 065
     Dates: start: 20080325, end: 20080325
  2. TAVANIC [Suspect]
     Indication: CREPITATIONS
     Route: 065
     Dates: start: 20080325, end: 20080325
  3. MUCOLYTIC DRUG [Concomitant]
     Indication: CREPITATIONS
     Route: 065
  4. SINTROM [Concomitant]
     Indication: CREPITATIONS
     Route: 065
  5. AMOXICILLIN [Concomitant]
     Indication: CREPITATIONS
     Route: 065

REACTIONS (1)
  - MYOCARDIAL INFARCTION [None]
